FAERS Safety Report 10350437 (Version 1)
Quarter: 2014Q3

REPORT INFORMATION
  Report Type: Spontaneous
  Country: US (occurrence: None)
  Receive Date: 20140728
  Receipt Date: 20140728
  Transmission Date: 20150326
  Serious: Yes (Congenital Anomaly)
  Sender: FDA-Public Use
  Company Number: 2014JUB00058

PATIENT
  Age: 1 Day
  Sex: Male
  Weight: 3.1 kg

DRUGS (2)
  1. AZATHIOPRINE (AZATHIOPRINE) [Suspect]
     Active Substance: AZATHIOPRINE
     Indication: AUTOIMMUNE HEPATITIS
     Route: 064
  2. METHYLPREDNISOLONE [Suspect]
     Active Substance: METHYLPREDNISOLONE
     Indication: AUTOIMMUNE HEPATITIS
     Route: 064

REACTIONS (16)
  - Peritonitis [None]
  - Ileal perforation [None]
  - Enterococcus test positive [None]
  - Dyspnoea [None]
  - Feeding disorder neonatal [None]
  - Haemorrhage [None]
  - Adhesion [None]
  - Caesarean section [None]
  - Periodontitis [None]
  - Pseudocyst [None]
  - Maternal drugs affecting foetus [None]
  - Use of accessory respiratory muscles [None]
  - Meconium peritonitis [None]
  - Premature baby [None]
  - Vomiting [None]
  - Placental disorder [None]
